FAERS Safety Report 19846177 (Version 4)
Quarter: 2021Q4

REPORT INFORMATION
  Report Type: Report from Study
  Country: US (occurrence: US)
  Receive Date: 20210916
  Receipt Date: 20211230
  Transmission Date: 20220303
  Serious: No
  Sender: FDA-Public Use
  Company Number: US-ORGANON-O2109USA000935

PATIENT
  Sex: Female
  Weight: 56.689 kg

DRUGS (2)
  1. IMPLANON [Suspect]
     Active Substance: ETONOGESTREL
     Dosage: 68 MILLIGRAM, EVERY 3 YEARS, STRENGTH: 68 MILLIGRAMS
     Route: 059
     Dates: start: 20210908, end: 20210908
  2. NEXPLANON [Suspect]
     Active Substance: ETONOGESTREL
     Indication: Contraception
     Dosage: 68 MG IMPLANT ROD
     Route: 059
     Dates: start: 2015, end: 20210908

REACTIONS (4)
  - Complication of device insertion [Recovered/Resolved]
  - Incorrect product administration duration [Unknown]
  - Product quality issue [Unknown]
  - No adverse event [Unknown]

NARRATIVE: CASE EVENT DATE: 20180101
